FAERS Safety Report 23379283 (Version 1)
Quarter: 2024Q1

REPORT INFORMATION
  Report Type: Spontaneous
  Country: US (occurrence: None)
  Receive Date: 20240107
  Receipt Date: 20240107
  Transmission Date: 20240410
  Serious: Yes (unspecified)
  Sender: FDA-Public Use
  Company Number: None

PATIENT
  Age: 73 Year
  Sex: Male

DRUGS (2)
  1. VABYSMO [Suspect]
     Active Substance: FARICIMAB\FARICIMAB-SVOA
     Indication: Polypoidal choroidal vasculopathy
     Dosage: 6 MG OPHTHALMIC
     Route: 047
     Dates: start: 20231012
  2. VABYSMO [Concomitant]
     Active Substance: FARICIMAB\FARICIMAB-SVOA
     Dates: start: 20231012

REACTIONS (4)
  - Vitritis [None]
  - Iridocyclitis [None]
  - Chorioretinitis [None]
  - Hypopyon [None]

NARRATIVE: CASE EVENT DATE: 20231015
